FAERS Safety Report 8689464 (Version 2)
Quarter: 2014Q4

REPORT INFORMATION
  Report Type: Spontaneous
  Country: US (occurrence: US)
  Receive Date: 20120727
  Receipt Date: 20141218
  Transmission Date: 20150529
  Serious: Yes (Other)
  Sender: FDA-Public Use
  Company Number: US-ASTRAZENECA-2012SE51190

PATIENT
  Age: 58 Year
  Sex: Female
  Weight: 67.1 kg

DRUGS (3)
  1. SYMBICORT [Suspect]
     Active Substance: BUDESONIDE\FORMOTEROL FUMARATE DIHYDRATE
     Indication: CHRONIC OBSTRUCTIVE PULMONARY DISEASE
     Dosage: 160/4.5 UNKNOWN
     Route: 055
  2. NITROGLYCERIN. [Concomitant]
     Active Substance: NITROGLYCERIN
     Indication: CARDIAC DISORDER
     Dosage: .4MG PRN
     Route: 060
  3. SYMBICORT [Suspect]
     Active Substance: BUDESONIDE\FORMOTEROL FUMARATE DIHYDRATE
     Indication: CHRONIC OBSTRUCTIVE PULMONARY DISEASE
     Dosage: 80/4.5 MCG 2 PUFFS DAILY
     Route: 055
     Dates: start: 2006

REACTIONS (6)
  - Breast cancer recurrent [Unknown]
  - Off label use [Not Recovered/Not Resolved]
  - Intercepted drug dispensing error [Unknown]
  - Chronic obstructive pulmonary disease [Unknown]
  - Pneumothorax [Unknown]
  - Palpitations [Unknown]

NARRATIVE: CASE EVENT DATE: 2006
